FAERS Safety Report 8506148-4 (Version None)
Quarter: 2012Q3

REPORT INFORMATION
  Report Type: 
  Country: None (occurrence: None)
  Receive Date: 20120712
  Receipt Date: 20120702
  Transmission Date: 20120928
  Serious: Yes (Other)
  Sender: FDA-Public Use
  Company Number: JP-SANOFI-AVENTIS-2012SA044606

PATIENT
  Age: 85 Year
  Sex: Male

DRUGS (4)
  1. ANTIHYPERTENSIVES [Concomitant]
     Route: 048
  2. HERBAL PREPARATION [Concomitant]
     Route: 048
  3. ZOLPIDEM [Suspect]
     Indication: INSOMNIA
     Route: 048
     Dates: start: 20120611
  4. DRUG USED IN DIABETES [Concomitant]
     Route: 048

REACTIONS (1)
  - HAEMATURIA [None]
